FAERS Safety Report 6384124-8 (Version None)
Quarter: 2009Q4

REPORT INFORMATION
  Report Type: 
  Country: None (occurrence: None)
  Receive Date: 20091001
  Receipt Date: 20090928
  Transmission Date: 20100525
  Serious: Yes (Death, Hospitalization)
  Sender: FDA-Public Use
  Company Number: DE-ROCHE-532610

PATIENT
  Sex: Female
  Weight: 50 kg

DRUGS (5)
  1. CAPECITABINE [Suspect]
     Dosage: 04 CYCLES OF 03 WEEKS THERAPY
     Route: 065
     Dates: start: 20070831, end: 20071118
  2. NEXIUM [Concomitant]
     Indication: PROPHYLAXIS
     Route: 048
     Dates: start: 20070723
  3. XIMOVAN [Concomitant]
     Route: 048
     Dates: start: 20070723
  4. PALLADONE [Concomitant]
     Indication: PAIN
     Route: 048
     Dates: start: 20070723
  5. SPIRIVA [Concomitant]
     Dosage: INDICATION REPORTED AS ^ANTI-ASTHMATICS^.
     Route: 048
     Dates: start: 20070723

REACTIONS (6)
  - CHEST PAIN [None]
  - CHRONIC OBSTRUCTIVE PULMONARY DISEASE [None]
  - DYSPNOEA [None]
  - FATIGUE [None]
  - MALIGNANT NEOPLASM PROGRESSION [None]
  - PNEUMONIA [None]
